FAERS Safety Report 16834289 (Version 1)
Quarter: 2019Q3

REPORT INFORMATION
  Report Type: Spontaneous
  Country: US (occurrence: US)
  Receive Date: 20190920
  Receipt Date: 20190920
  Transmission Date: 20191005
  Serious: Yes (Other)
  Sender: FDA-Public Use
  Company Number: US-PFIZER INC-2019407147

PATIENT
  Age: 11 Year
  Sex: Male
  Weight: 31.75 kg

DRUGS (1)
  1. JUNIOR STRENGTH ADVIL [Suspect]
     Active Substance: IBUPROFEN
     Indication: OROPHARYNGEAL PAIN
     Dosage: 2.5 MG, UNK (ONCE)
     Route: 048
     Dates: start: 201908, end: 201908

REACTIONS (7)
  - Throat irritation [Recovered/Resolved]
  - Retching [Recovered/Resolved]
  - Dyspnoea [Recovered/Resolved]
  - Choking [Recovered/Resolved]
  - Skin discolouration [Recovered/Resolved]
  - Secretion discharge [Recovered/Resolved]
  - Oral discomfort [Recovered/Resolved]

NARRATIVE: CASE EVENT DATE: 201908
